FAERS Safety Report 14227224 (Version 2)
Quarter: 2017Q4

REPORT INFORMATION
  Report Type: Report from Study
  Country: FR (occurrence: FR)
  Receive Date: 20171127
  Receipt Date: 20171208
  Transmission Date: 20180321
  Serious: Yes (Hospitalization, Other)
  Sender: FDA-Public Use
  Company Number: FR-BRISTOL-MYERS SQUIBB COMPANY-BMS-2017-105442

PATIENT
  Age: 85 Year
  Sex: Male
  Weight: 72 kg

DRUGS (1)
  1. NIVOLUMAB [Suspect]
     Active Substance: NIVOLUMAB
     Indication: SKIN CANCER
     Dosage: 240 MG, UNK
     Route: 042
     Dates: start: 20170804, end: 20171110

REACTIONS (1)
  - Pneumonia [Recovered/Resolved]

NARRATIVE: CASE EVENT DATE: 20171117
